FAERS Safety Report 11679511 (Version 2)
Quarter: 2015Q4

REPORT INFORMATION
  Report Type: Spontaneous
  Country: US (occurrence: US)
  Receive Date: 20151028
  Receipt Date: 20151113
  Transmission Date: 20160304
  Serious: Yes (Death, Life-Threatening, Hospitalization, Disabling, Other)
  Sender: FDA-Public Use
  Company Number: US-FRESENIUS MEDICAL CARE NORTH AMERICA-1043524

PATIENT
  Age: 87 Year
  Sex: Male
  Weight: 80 kg

DRUGS (1)
  1. DELFLEX [Suspect]
     Active Substance: CALCIUM CHLORIDE\DEXTROSE MONOHYDRATE\MAGNESIUM CHLORIDE\SODIUM CHLORIDE\SODIUM LACTATE
     Indication: CHRONIC KIDNEY DISEASE
     Route: 033
     Dates: start: 20150811, end: 20151011

REACTIONS (4)
  - Dry gangrene [Not Recovered/Not Resolved]
  - Leg amputation [Not Recovered/Not Resolved]
  - Septic shock [Fatal]
  - Skin necrosis [Not Recovered/Not Resolved]

NARRATIVE: CASE EVENT DATE: 20150923
